FAERS Safety Report 10448555 (Version 1)
Quarter: 2014Q3

REPORT INFORMATION
  Report Type: Spontaneous
  Country: US (occurrence: US)
  Receive Date: 20140911
  Receipt Date: 20140911
  Transmission Date: 20150326
  Serious: Yes (Death, Other)
  Sender: FDA-Public Use
  Company Number: PHHY2014US115084

PATIENT
  Age: 35 Year
  Sex: Male

DRUGS (3)
  1. DAUNORUBICIN [Suspect]
     Active Substance: DAUNORUBICIN
     Dosage: 60 MG/M2, UNK
  2. CYTARABINE. [Suspect]
     Active Substance: CYTARABINE
     Dosage: 100 MG/M2/D FOR 07 DAYS
  3. TOPOTECAN [Suspect]
     Active Substance: TOPOTECAN\TOPOTECAN HYDROCHLORIDE

REACTIONS (7)
  - Bacteraemia [Unknown]
  - Pneumonia [Unknown]
  - Meningitis [Unknown]
  - Acute myeloid leukaemia recurrent [Unknown]
  - Infection [Fatal]
  - Graft versus host disease [Unknown]
  - Respiratory failure [Fatal]
